FAERS Safety Report 23444920 (Version 3)
Quarter: 2024Q2

REPORT INFORMATION
  Report Type: Spontaneous
  Country: US (occurrence: US)
  Receive Date: 20240125
  Receipt Date: 20240415
  Transmission Date: 20240715
  Serious: Yes (Hospitalization)
  Sender: FDA-Public Use
  Company Number: US-AMX-007180

PATIENT
  Age: 59 Year
  Sex: Male

DRUGS (1)
  1. RELYVRIO [Suspect]
     Active Substance: SODIUM PHENYLBUTYRATE\TAURURSODIOL
     Indication: Amyotrophic lateral sclerosis
     Dosage: 1 SACHET ONCE DAILY FOR FIRST THREE WEEKS AND THEN ONE SACHET TWICE DAILY
     Route: 048

REACTIONS (3)
  - Pancreatitis [Unknown]
  - Product supply issue [Unknown]
  - Illness [Unknown]
